FAERS Safety Report 6147500-4 (Version None)
Quarter: 2009Q2

REPORT INFORMATION
  Report Type: 
  Country: None (occurrence: None)
  Receive Date: 20090408
  Receipt Date: 20090401
  Transmission Date: 20091009
  Serious: Yes (Hospitalization)
  Sender: FDA-Public Use
  Company Number: US-BIOGENIDEC-2009BI010156

PATIENT
  Age: 61 Year
  Sex: Female

DRUGS (6)
  1. AVONEX [Suspect]
     Indication: MULTIPLE SCLEROSIS
     Route: 030
  2. ALDACTONE [Concomitant]
     Indication: HYPERTENSION
  3. BENICAR [Concomitant]
     Indication: HYPERTENSION
  4. NORVASC [Concomitant]
     Indication: HYPERTENSION
  5. METOPROLOL [Concomitant]
     Indication: HYPERTENSION
     Dates: start: 20090301
  6. ZEBETA [Concomitant]
     Indication: HYPERTENSION
     Dates: start: 20090301

REACTIONS (1)
  - MYOCARDIAL INFARCTION [None]
